FAERS Safety Report 10792392 (Version 1)
Quarter: 2015Q1

REPORT INFORMATION
  Report Type: Spontaneous
  Country: US (occurrence: US)
  Receive Date: 20150213
  Receipt Date: 20150213
  Transmission Date: 20150721
  Serious: No
  Sender: FDA-Public Use
  Company Number: US-009507513-1502USA003778

PATIENT
  Sex: Female
  Weight: 99.77 kg

DRUGS (1)
  1. MIRALAX [Suspect]
     Active Substance: POLYETHYLENE GLYCOL 3350
     Indication: CONSTIPATION
     Dosage: 34 G, QD
     Route: 048

REACTIONS (4)
  - Overdose [Unknown]
  - Incorrect drug administration duration [Unknown]
  - Product physical consistency issue [Unknown]
  - Product use issue [Unknown]
